FAERS Safety Report 24539070 (Version 1)
Quarter: 2024Q4

REPORT INFORMATION
  Report Type: Spontaneous
  Country: CA (occurrence: CA)
  Receive Date: 20241023
  Receipt Date: 20241023
  Transmission Date: 20250114
  Serious: Yes (Other)
  Sender: SANDOZ
  Company Number: CA-NOVPHSZ-PHHY2019CA125281

PATIENT
  Age: 23 Year
  Sex: Female

DRUGS (1)
  1. LEUPROLIDE ACETATE [Suspect]
     Active Substance: LEUPROLIDE ACETATE
     Indication: Leiomyoma
     Dosage: UNK
     Route: 065

REACTIONS (2)
  - Autonomic nervous system imbalance [Unknown]
  - Product use in unapproved indication [Unknown]
